FAERS Safety Report 16439506 (Version 2)
Quarter: 2019Q3

REPORT INFORMATION
  Report Type: Spontaneous
  Country: US (occurrence: US)
  Receive Date: 20190617
  Receipt Date: 20190708
  Transmission Date: 20191004
  Serious: Yes (Hospitalization)
  Sender: FDA-Public Use
  Company Number: US-PFIZER INC-2019251339

PATIENT
  Age: 65 Year
  Sex: Female
  Weight: 78.9 kg

DRUGS (4)
  1. IMVEXXY [Suspect]
     Active Substance: ESTRADIOL
     Indication: SEXUAL DYSFUNCTION
     Dosage: 10 UG, 1X/DAY (AT BEDTIME)
     Route: 067
     Dates: start: 2019, end: 2019
  2. CLINDAMYCIN HCL [Suspect]
     Active Substance: CLINDAMYCIN HYDROCHLORIDE
     Indication: SINUSITIS
     Dosage: 300 MG, 1X/DAY
     Route: 048
     Dates: start: 2019, end: 20190430
  3. IMVEXXY [Suspect]
     Active Substance: ESTRADIOL
     Indication: HORMONE THERAPY
     Dosage: 10 UG, 2X/WEEK (AT BEDTIME)
     Route: 067
     Dates: start: 201903
  4. HORIZANT [Concomitant]
     Active Substance: GABAPENTIN ENACARBIL
     Indication: NEUROPATHY PERIPHERAL
     Dosage: 600 MG, 1X/DAY (AT BEDTIME)
     Dates: start: 2019

REACTIONS (5)
  - Sinusitis [Unknown]
  - Toothache [Recovered/Resolved]
  - Vulvovaginal mycotic infection [Recovered/Resolved]
  - Vulvovaginal rash [Recovering/Resolving]
  - Vulvovaginal pruritus [Recovering/Resolving]

NARRATIVE: CASE EVENT DATE: 2019
